FAERS Safety Report 4764987-X (Version None)
Quarter: 2005Q3

REPORT INFORMATION
  Report Type: 
  Country: None (occurrence: None)
  Receive Date: 20050909
  Receipt Date: 20050831
  Transmission Date: 20060218
  Serious: Yes (Other)
  Sender: FDA-Public Use
  Company Number: US-ROCHE-416319

PATIENT
  Age: 47 Year
  Sex: Female
  Weight: 101.2 kg

DRUGS (7)
  1. PEGASYS [Suspect]
     Indication: HEPATITIS C
     Dosage: ROUTE REPORTED AS INJECTABLE.
     Route: 050
     Dates: start: 20041122
  2. RIBASPHERE [Suspect]
     Indication: HEPATITIS C
     Route: 048
     Dates: start: 20041122
  3. ALLOPURINOL [Concomitant]
  4. MICROZIDE [Concomitant]
  5. ACETAMINOPHEN [Concomitant]
     Dates: start: 20041122
  6. DIPHENHYDRAMINE HCL [Concomitant]
     Dates: start: 20041122
  7. HYDROCHLOROTHIAZIDE [Concomitant]
     Indication: PAIN
     Dates: start: 20040628

REACTIONS (9)
  - ALOPECIA [None]
  - ASTHENIA [None]
  - DEPRESSION [None]
  - DIZZINESS POSTURAL [None]
  - FATIGUE [None]
  - INSOMNIA [None]
  - ORAL INFECTION [None]
  - SOMNOLENCE [None]
  - TOOTH DISORDER [None]
